FAERS Safety Report 16212496 (Version 3)
Quarter: 2022Q1

REPORT INFORMATION
  Report Type: Report from Study
  Country: DE (occurrence: DE)
  Receive Date: 20190418
  Receipt Date: 20220216
  Transmission Date: 20220423
  Serious: Yes (Hospitalization)
  Sender: FDA-Public Use
  Company Number: DE-SA-2019SA077501

PATIENT
  Age: 64 Year
  Sex: Male
  Weight: 80 kg

DRUGS (16)
  1. AFLIBERCEPT [Suspect]
     Active Substance: AFLIBERCEPT
     Indication: Rectal cancer
     Dosage: 320 MG, QCY
     Route: 042
     Dates: start: 20190318, end: 20190318
  2. AFLIBERCEPT [Suspect]
     Active Substance: AFLIBERCEPT
     Indication: Rectal cancer
     Dosage: 320 MG, QCY
     Route: 042
     Dates: start: 20190318, end: 20190318
  3. INVESTIGATIONAL PRODUCT [Suspect]
     Active Substance: INVESTIGATIONAL PRODUCT
     Indication: Rectal cancer
     Dosage: 320 MG, QCY
     Route: 042
     Dates: start: 20190318, end: 20190318
  4. PLACEBO [Suspect]
     Active Substance: UNSPECIFIED INGREDIENT
     Indication: Rectal cancer
     Dosage: 320 MG, QCY
     Route: 042
     Dates: start: 20190318, end: 20190318
  5. AFLIBERCEPT [Suspect]
     Active Substance: AFLIBERCEPT
     Dosage: 320 MG, QCY
     Route: 042
     Dates: start: 20190215, end: 20190215
  6. AFLIBERCEPT [Suspect]
     Active Substance: AFLIBERCEPT
     Dosage: 320 MG, QCY
     Route: 042
     Dates: start: 20190215, end: 20190215
  7. INVESTIGATIONAL PRODUCT [Suspect]
     Active Substance: INVESTIGATIONAL PRODUCT
     Dosage: 320 MG, QCY
     Route: 042
     Dates: start: 20190215, end: 20190215
  8. PLACEBO [Suspect]
     Active Substance: UNSPECIFIED INGREDIENT
     Dosage: 320 MG, QCY
     Route: 042
     Dates: start: 20190215, end: 20190215
  9. FLUOROURACIL [Suspect]
     Active Substance: FLUOROURACIL
     Indication: Rectal cancer
     Dosage: 5600 MG, QCY
     Route: 042
     Dates: start: 20190305, end: 20190305
  10. FLUOROURACIL [Suspect]
     Active Substance: FLUOROURACIL
     Dosage: 5600 MG, QCY
     Route: 042
     Dates: start: 20190215, end: 20190215
  11. OXALIPLATIN [Suspect]
     Active Substance: OXALIPLATIN
     Indication: Rectal cancer
     Dosage: 170 MG, QCY
     Route: 042
     Dates: start: 20190318, end: 20190318
  12. OXALIPLATIN [Suspect]
     Active Substance: OXALIPLATIN
     Dosage: 170 MG, QCY
     Route: 042
     Dates: start: 20190215, end: 20190215
  13. LEUCOVORIN [Suspect]
     Active Substance: LEUCOVORIN
     Indication: Rectal cancer
     Dosage: 700 MG, QCY
     Route: 042
     Dates: start: 20190304, end: 20190304
  14. LEUCOVORIN [Suspect]
     Active Substance: LEUCOVORIN
     Dosage: 700 MG, QCY
     Route: 042
     Dates: start: 20190215, end: 20190215
  15. FLUOROURACIL SODIUM [Suspect]
     Active Substance: FLUOROURACIL SODIUM
     Dosage: UNK
  16. LEUCOVORIN [Concomitant]
     Active Substance: LEUCOVORIN

REACTIONS (3)
  - Hypertension [Recovered/Resolved]
  - Proteinuria [Recovered/Resolved]
  - Nephrotic syndrome [Recovered/Resolved]

NARRATIVE: CASE EVENT DATE: 20190318
